FAERS Safety Report 24005217 (Version 1)
Quarter: 2024Q2

REPORT INFORMATION
  Report Type: Spontaneous
  Country: US (occurrence: US)
  Receive Date: 20240624
  Receipt Date: 20240624
  Transmission Date: 20240716
  Serious: No
  Sender: FDA-Public Use
  Company Number: US-INSUD PHARMA-2406US04955

PATIENT

DRUGS (2)
  1. OMEPRAZOLE [Suspect]
     Active Substance: DONEPEZIL HYDROCHLORIDE\OMEPRAZOLE\OMEPRAZOLE MAGNESIUM
     Indication: Gastrooesophageal reflux disease
     Dosage: 20 MG DAILY 1 HOUR BEFORE A MEAL
     Route: 048
     Dates: start: 20240617
  2. SUCRALFATE [Concomitant]
     Active Substance: SUCRALFATE
     Dosage: 1 MG DAILY, 1 HOUR AFTER MEAL

REACTIONS (2)
  - Dysuria [Not Recovered/Not Resolved]
  - Headache [Not Recovered/Not Resolved]

NARRATIVE: CASE EVENT DATE: 20240601
